FAERS Safety Report 4910293-X (Version None)
Quarter: 2006Q1

REPORT INFORMATION
  Report Type: 
  Country: None (occurrence: None)
  Receive Date: 20060213
  Receipt Date: 20050602
  Transmission Date: 20060701
  Serious: Yes (Hospitalization, Disabling)
  Sender: FDA-Public Use
  Company Number: US-MERCK-0506USA00837

PATIENT
  Age: 52 Year
  Sex: Female
  Weight: 94 kg

DRUGS (2)
  1. VIOXX [Suspect]
     Indication: ARTHRITIS
     Route: 048
     Dates: start: 20020501, end: 20040801
  2. VIOXX [Suspect]
     Indication: SCIATICA
     Route: 048
     Dates: start: 20020501, end: 20040801

REACTIONS (15)
  - ACUTE MYOCARDIAL INFARCTION [None]
  - BACK PAIN [None]
  - BRONCHITIS [None]
  - CARDIAC ARREST [None]
  - CARDIAC DISORDER [None]
  - CHEST PAIN [None]
  - CHOLECYSTITIS CHRONIC [None]
  - CHOLELITHIASIS [None]
  - CORONARY ARTERY DISEASE [None]
  - CORONARY ARTERY RESTENOSIS [None]
  - LIVER FUNCTION TEST ABNORMAL [None]
  - PAIN [None]
  - PULMONARY HYPERTENSION [None]
  - RASH [None]
  - VENTRICULAR FIBRILLATION [None]
